FAERS Safety Report 6497830-1 (Version None)
Quarter: 2009Q4

REPORT INFORMATION
  Report Type: 
  Country: None (occurrence: None)
  Receive Date: 20091125
  Receipt Date: 20081210
  Transmission Date: 20100525
  Serious: Yes (Hospitalization)
  Sender: FDA-Public Use
  Company Number: 2008BH012815

PATIENT
  Age: 57 Year
  Sex: Female
  Weight: 92 kg

DRUGS (16)
  1. DIANEAL [Suspect]
     Indication: PERITONEAL DIALYSIS
     Dosage: IP
     Route: 033
  2. ASPIRIN [Concomitant]
  3. CELEXA [Concomitant]
  4. CLARITIN [Concomitant]
  5. COREG [Concomitant]
  6. DESYREL [Concomitant]
  7. DIOVAN [Concomitant]
  8. HUMULIN R [Concomitant]
  9. LANTUS [Concomitant]
  10. LASIX [Concomitant]
  11. LIPITOR [Concomitant]
  12. LISINOPRIL [Concomitant]
  13. METHADONE [Concomitant]
  14. PLAVIX [Concomitant]
  15. PROVERA [Concomitant]
  16. ZOSTERL [Concomitant]

REACTIONS (2)
  - PERITONEAL DIALYSIS COMPLICATION [None]
  - PERITONITIS [None]
